FAERS Safety Report 11052620 (Version 1)
Quarter: 2015Q2

REPORT INFORMATION
  Report Type: Spontaneous
  Country: GB (occurrence: None)
  Receive Date: 20150417
  Receipt Date: 20150417
  Transmission Date: 20150821
  Serious: Yes (Life-Threatening, Other)
  Sender: FDA-Public Use
  Company Number: COL_19562_2015

PATIENT
  Age: 65 Year
  Sex: Male
  Weight: 95 kg

DRUGS (11)
  1. ALFACALCIDOL [Concomitant]
     Active Substance: ALFACALCIDOL
  2. DILTIAZEM [Concomitant]
     Active Substance: DILTIAZEM
  3. DOXAZOSIN [Concomitant]
     Active Substance: DOXAZOSIN\DOXAZOSIN MESYLATE
  4. CALCIUM ACETATE. [Concomitant]
     Active Substance: CALCIUM ACETATE
  5. CHLORHEXIDINE (CHLORHEXIDINE) [Suspect]
     Active Substance: CHLORHEXIDINE
     Dosage: CUTANEOUS
     Dates: start: 20140924, end: 20140924
  6. COSMOFER [Concomitant]
     Active Substance: IRON DEXTRAN
  7. LISINOPRIL. [Concomitant]
     Active Substance: LISINOPRIL
  8. ASTORVASTATIN [Concomitant]
  9. ARANESP [Concomitant]
     Active Substance: DARBEPOETIN ALFA
  10. ASPIRIN. [Concomitant]
     Active Substance: ASPIRIN
  11. KETOVITE /00660901/ [Concomitant]

REACTIONS (1)
  - Cardiac arrest [None]

NARRATIVE: CASE EVENT DATE: 20140924
